FAERS Safety Report 10533521 (Version 1)
Quarter: 2014Q4

REPORT INFORMATION
  Report Type: Spontaneous
  Country: ES (occurrence: ES)
  Receive Date: 20141022
  Receipt Date: 20141022
  Transmission Date: 20150529
  Serious: Yes (Death)
  Sender: FDA-Public Use
  Company Number: PHHY2014ES136316

PATIENT
  Age: 72 Year
  Sex: Female

DRUGS (3)
  1. AZATHIOPRINE. [Suspect]
     Active Substance: AZATHIOPRINE
     Indication: EPIDERMOLYSIS BULLOSA
     Dosage: 100 MG, QD
     Route: 065
  2. PREDNISONE. [Suspect]
     Active Substance: PREDNISONE
     Indication: EPIDERMOLYSIS BULLOSA
     Dosage: 60 MG, QD
     Route: 065
  3. CICLOSPORIN [Suspect]
     Active Substance: CYCLOSPORINE
     Indication: EPIDERMOLYSIS BULLOSA
     Route: 065

REACTIONS (3)
  - Therapeutic response decreased [Unknown]
  - Pulmonary embolism [Fatal]
  - Drug ineffective [Unknown]
